FAERS Safety Report 22620411 (Version 1)
Quarter: 2023Q2

REPORT INFORMATION
  Report Type: Spontaneous
  Country: US (occurrence: US)
  Receive Date: 20230620
  Receipt Date: 20230620
  Transmission Date: 20230721
  Serious: Yes (Life-Threatening, Hospitalization)
  Sender: FDA-Public Use
  Company Number: US-Vifor (International) Inc.-VIT-2023-04533

PATIENT
  Age: 82 Year
  Sex: Female
  Weight: 31.326 kg

DRUGS (1)
  1. MIRCERA [Suspect]
     Active Substance: METHOXY POLYETHYLENE GLYCOL-EPOETIN BETA
     Indication: Nephrogenic anaemia
     Dosage: FIRST DOSE
     Route: 040
     Dates: start: 20230615, end: 20230615

REACTIONS (4)
  - Drug hypersensitivity [Unknown]
  - Feeling abnormal [Unknown]
  - Respiratory arrest [Unknown]
  - Pulse absent [Unknown]

NARRATIVE: CASE EVENT DATE: 20230615
